FAERS Safety Report 10411359 (Version 2)
Quarter: 2014Q3

REPORT INFORMATION
  Report Type: Spontaneous
  Country: US (occurrence: US)
  Receive Date: 20140826
  Receipt Date: 20140826
  Transmission Date: 20150326
  Serious: Yes (Hospitalization, Other)
  Sender: FDA-Public Use
  Company Number: US-009507513-2009SP040180

PATIENT
  Sex: Female
  Weight: 90.72 kg

DRUGS (2)
  1. NUVARING [Suspect]
     Active Substance: ETHINYL ESTRADIOL\ETONOGESTREL
     Indication: OVARIAN CYST
     Route: 067
     Dates: start: 200603, end: 200605
  2. NUVARING [Suspect]
     Active Substance: ETHINYL ESTRADIOL\ETONOGESTREL
     Indication: ENDOMETRIOSIS

REACTIONS (4)
  - Pulmonary embolism [Recovered/Resolved]
  - Haemoglobin increased [Unknown]
  - Off label use [Unknown]
  - Menorrhagia [Unknown]

NARRATIVE: CASE EVENT DATE: 200605
